FAERS Safety Report 9360580 (Version 1)
Quarter: 2013Q2

REPORT INFORMATION
  Report Type: Spontaneous
  Country: IE (occurrence: IE)
  Receive Date: 20130621
  Receipt Date: 20130621
  Transmission Date: 20140414
  Serious: Yes (Hospitalization, Other)
  Sender: FDA-Public Use
  Company Number: PHFR2013IE000714

PATIENT
  Age: 58 Year
  Sex: Male

DRUGS (10)
  1. CLOZARIL [Suspect]
     Indication: SCHIZOPHRENIA
     Dosage: UNK
     Route: 048
     Dates: start: 20031208
  2. CLOZARIL [Suspect]
     Dosage: 500 MG
     Route: 048
     Dates: start: 20090406
  3. BIPERIDEN [Concomitant]
     Indication: EXTRAPYRAMIDAL DISORDER
     Dosage: 4 MG
     Route: 048
     Dates: start: 20090406
  4. CITALOPRAM [Concomitant]
     Indication: DEPRESSION
     Dosage: 20 MG, UNK
     Route: 048
     Dates: start: 20090406
  5. ATORVASTATIN [Concomitant]
     Indication: BLOOD CHOLESTEROL INCREASED
     Dosage: 20 MG, UNK
     Route: 048
     Dates: start: 20090406
  6. FLURAZEPAM [Concomitant]
     Indication: INSOMNIA
     Dosage: 15 MG, UNK
     Route: 048
     Dates: start: 20100531
  7. HALOPERIDOL [Concomitant]
     Indication: SCHIZOPHRENIA
     Dosage: 15 MG, UNK
     Route: 048
     Dates: start: 20121009
  8. NEXIUM 1-2-3 [Concomitant]
     Indication: GASTRITIS
     Dosage: 40 MG, UNK
     Route: 048
     Dates: start: 20121021
  9. FERROUS FUMARATE [Concomitant]
     Indication: HAEMOGLOBIN DECREASED
     Dosage: 305 MG, UNK
     Route: 048
     Dates: start: 20130124
  10. FENOFIBRATE [Concomitant]
     Indication: BLOOD TRIGLYCERIDES INCREASED
     Dosage: 290 MG
     Route: 048
     Dates: start: 20090406

REACTIONS (5)
  - General physical condition abnormal [Unknown]
  - Cholecystitis acute [Not Recovered/Not Resolved]
  - Gallbladder enlargement [Unknown]
  - Cellulitis [Recovered/Resolved]
  - White blood cell count increased [Recovered/Resolved]
